FAERS Safety Report 15496591 (Version 2)
Quarter: 2019Q1

REPORT INFORMATION
  Report Type: Report from Study
  Country: CZ (occurrence: CZ)
  Receive Date: 20181013
  Receipt Date: 20190108
  Transmission Date: 20190417
  Serious: Yes (Other)
  Sender: FDA-Public Use
  Company Number: CZ-TEVA-2018-CZ-961965

PATIENT
  Age: 40 Year
  Sex: Female

DRUGS (2)
  1. BIOFENAC [Concomitant]
     Dosage: BIOFENAC (ACECLOFENAC) 100 MG TABLETS - TAKEN ACCORDING TO ACTUAL NEED
     Route: 065
  2. COPAXONE [Suspect]
     Active Substance: GLATIRAMER ACETATE
     Indication: CLINICALLY ISOLATED SYNDROME
     Dosage: COPAXONE 40 MG/ML
     Route: 058
     Dates: start: 20180423

REACTIONS (5)
  - Immediate post-injection reaction [Recovered/Resolved]
  - Dyspnoea [Recovered/Resolved]
  - Fear of injection [Recovered/Resolved]
  - Hot flush [Recovered/Resolved]
  - Chest discomfort [Recovered/Resolved]

NARRATIVE: CASE EVENT DATE: 20180926
